FAERS Safety Report 9144616 (Version 2)
Quarter: 2013Q2

REPORT INFORMATION
  Report Type: Spontaneous
  Country: US (occurrence: US)
  Receive Date: 20130306
  Receipt Date: 20130415
  Transmission Date: 20140414
  Serious: Yes (Hospitalization, Other)
  Sender: FDA-Public Use
  Company Number: US-ROCHE-1097307

PATIENT
  Age: 25 Year
  Sex: Female
  Weight: 88.53 kg

DRUGS (2)
  1. ACCUTANE [Suspect]
     Indication: ACNE
     Route: 065
     Dates: start: 20021014, end: 200301
  2. ACCUTANE [Suspect]
     Route: 065
     Dates: end: 200304

REACTIONS (8)
  - Crohn^s disease [Unknown]
  - Arthropathy [Unknown]
  - Colitis ulcerative [Not Recovered/Not Resolved]
  - Inflammatory bowel disease [Unknown]
  - Intestinal haemorrhage [Unknown]
  - Intestinal obstruction [Unknown]
  - Depression [Unknown]
  - Irritable bowel syndrome [Unknown]
